FAERS Safety Report 6005007-9 (Version None)
Quarter: 2008Q4

REPORT INFORMATION
  Report Type: 
  Country: None (occurrence: None)
  Receive Date: 20081216
  Receipt Date: 20080915
  Transmission Date: 20090506
  Serious: No
  Sender: FDA-Public Use
  Company Number: US-BAUSCH-2008BL004045

PATIENT
  Sex: Male

DRUGS (1)
  1. ALAWAY [Suspect]
     Indication: DRUG USE FOR UNKNOWN INDICATION
     Route: 047

REACTIONS (1)
  - DRUG INEFFECTIVE [None]
